FAERS Safety Report 4338953-2 (Version None)
Quarter: 2004Q2

REPORT INFORMATION
  Report Type: 
  Country: None (occurrence: None)
  Receive Date: 20040409
  Receipt Date: 20040328
  Transmission Date: 20050107
  Serious: Yes (Life-Threatening, Hospitalization)
  Sender: FDA-Public Use
  Company Number: CIP04000570

PATIENT
  Age: 60 Year
  Sex: Female
  Weight: 68.9 kg

DRUGS (1)
  1. ACTONEL [Suspect]
     Indication: OSTEOPENIA
     Dosage: 35 MG ONE DOSE, ORAL
     Route: 048
     Dates: start: 20040205, end: 20040205

REACTIONS (6)
  - ABDOMINAL DISCOMFORT [None]
  - ABDOMINAL PAIN UPPER [None]
  - APPENDICITIS PERFORATED [None]
  - CHEST PAIN [None]
  - DYSPEPSIA [None]
  - SENSATION OF FOREIGN BODY [None]
